FAERS Safety Report 7636220-2 (Version None)
Quarter: 2011Q3

REPORT INFORMATION
  Report Type: 
  Country: None (occurrence: None)
  Receive Date: 20110726
  Receipt Date: 20110715
  Transmission Date: 20111222
  Serious: Yes (Hospitalization)
  Sender: FDA-Public Use
  Company Number: DK-JNJFOC-20110302711

PATIENT
  Sex: Male
  Weight: 90 kg

DRUGS (13)
  1. REMICADE [Suspect]
     Route: 042
  2. ACETAMINOPHEN [Concomitant]
     Route: 048
  3. SIMVASTATIN [Concomitant]
     Route: 048
  4. REMICADE [Suspect]
     Route: 042
     Dates: start: 20091215, end: 20100225
  5. IBUPROFEN [Concomitant]
     Route: 048
  6. METHOTREXATE SODIUM [Concomitant]
  7. UNIKALK SENIOR [Concomitant]
  8. PREDNISOLONE [Concomitant]
  9. ALENDRONATE SODIUM [Concomitant]
     Route: 048
  10. REMICADE [Suspect]
     Indication: SERONEGATIVE ARTHRITIS
     Route: 042
  11. REMICADE [Suspect]
     Route: 042
     Dates: start: 20090907
  12. ENBREL [Suspect]
     Indication: SERONEGATIVE ARTHRITIS
     Route: 058
     Dates: start: 20100226, end: 20101116
  13. FOLIMET [Concomitant]
     Route: 048

REACTIONS (1)
  - LANGERHANS' CELL HISTIOCYTOSIS [None]
